FAERS Safety Report 14629443 (Version 1)
Quarter: 2018Q1

REPORT INFORMATION
  Report Type: Spontaneous
  Country: US (occurrence: US)
  Receive Date: 20180312
  Receipt Date: 20180312
  Transmission Date: 20180509
  Serious: No
  Sender: FDA-Public Use
  Company Number: None

PATIENT
  Age: 37 Year
  Sex: Female
  Weight: 81 kg

DRUGS (12)
  1. DAILY MULTIVITAMIN [Concomitant]
     Active Substance: VITAMINS
  2. METAMUCIL [Concomitant]
     Active Substance: PLANTAGO SEED
  3. WELLBUTRIN [Concomitant]
     Active Substance: BUPROPION HYDROCHLORIDE
  4. NORCO [Concomitant]
     Active Substance: ACETAMINOPHEN\HYDROCODONE BITARTRATE
  5. MIRENA [Concomitant]
     Active Substance: LEVONORGESTREL
  6. PRILOSEC [Concomitant]
     Active Substance: OMEPRAZOLE MAGNESIUM
  7. VITAMIN B12 [Concomitant]
     Active Substance: CYANOCOBALAMIN
  8. LAMICTAL [Concomitant]
     Active Substance: LAMOTRIGINE
  9. ZOLOFT [Concomitant]
     Active Substance: SERTRALINE HYDROCHLORIDE
  10. LYRICA [Concomitant]
     Active Substance: PREGABALIN
  11. ADAVIR [Concomitant]
  12. LYRICA [Suspect]
     Active Substance: PREGABALIN
     Indication: PAIN
     Dosage: ?          QUANTITY:3 CAPSULE(S);?
     Route: 048
     Dates: start: 20180205, end: 20180312

REACTIONS (5)
  - Libido decreased [None]
  - Product label issue [None]
  - Prescribed overdose [None]
  - Partner stress [None]
  - Anorgasmia [None]

NARRATIVE: CASE EVENT DATE: 20180312
